FAERS Safety Report 9660410 (Version 2)
Quarter: 2014Q2

REPORT INFORMATION
  Report Type: Spontaneous
  Country: US (occurrence: US)
  Receive Date: 20131031
  Receipt Date: 20140515
  Transmission Date: 20141212
  Serious: Yes (Hospitalization)
  Sender: FDA-Public Use
  Company Number: US-BAYER-2013-132446

PATIENT
  Age: 26 Year
  Sex: Female
  Weight: 60 kg

DRUGS (4)
  1. YAZ [Suspect]
     Route: 048
  2. AZITHROMYCIN [Concomitant]
     Dosage: 250 MG, 2 TODAY THEN 1 DAILY FOR 4 DAYS
     Route: 048
  3. PROMETHAZINE W/CODEINE [Concomitant]
     Dosage: 1 TEASPOONFUL 4 TIMES A DAY AS NEEDED
     Route: 048
  4. LEVAQUIN [Concomitant]
     Dosage: 500 MG, QD
     Route: 048

REACTIONS (3)
  - Axillary vein thrombosis [Recovered/Resolved]
  - Subclavian vein thrombosis [Recovered/Resolved]
  - Deep vein thrombosis [Recovered/Resolved]
